FAERS Safety Report 8679426 (Version 2)
Quarter: 2013Q4

REPORT INFORMATION
  Report Type: Spontaneous
  Country: FR (occurrence: FR)
  Receive Date: 20120724
  Receipt Date: 20131101
  Transmission Date: 20140711
  Serious: No
  Sender: FDA-Public Use
  Company Number: FR-JNJFOC-20120705983

PATIENT
  Age: 4 Decade
  Sex: Female

DRUGS (2)
  1. DUROGESIC [Suspect]
     Indication: PAIN
     Route: 062
  2. DUROGESIC [Suspect]
     Indication: PAIN
     Dosage: AS NECESSARY
     Route: 062

REACTIONS (3)
  - Pain [Recovered/Resolved]
  - Wrong technique in drug usage process [Recovered/Resolved]
  - Product quality issue [Recovered/Resolved]
